FAERS Safety Report 16851710 (Version 1)
Quarter: 2019Q3

REPORT INFORMATION
  Report Type: Spontaneous
  Country: US (occurrence: US)
  Receive Date: 20190925
  Receipt Date: 20190925
  Transmission Date: 20191005
  Serious: Yes (Other)
  Sender: FDA-Public Use
  Company Number: US-SUNOVION-2019SUN003906

PATIENT
  Age: 58 Year
  Sex: Male

DRUGS (1)
  1. LONHALA MAGNAIR [Suspect]
     Active Substance: GLYCOPYRROLATE
     Dosage: 25 ?G REFILL KIT 60/30 DAYS
     Route: 055

REACTIONS (4)
  - Anxiety [Unknown]
  - Malaise [Unknown]
  - Insomnia [Unknown]
  - Blindness [Unknown]
